FAERS Safety Report 12184236 (Version 2)
Quarter: 2016Q4

REPORT INFORMATION
  Report Type: Spontaneous
  Country: US (occurrence: US)
  Receive Date: 20160316
  Receipt Date: 20161004
  Transmission Date: 20170207
  Serious: No
  Sender: FDA-Public Use
  Company Number: US-009507513-1603USA000091

PATIENT
  Age: 23 Year
  Sex: Female

DRUGS (1)
  1. IMPLANON [Suspect]
     Active Substance: ETONOGESTREL
     Dosage: 1 DF, UNK
     Dates: start: 20120328, end: 20160425

REACTIONS (8)
  - Device difficult to use [Recovered/Resolved]
  - Incorrect drug administration duration [Unknown]
  - Device deployment issue [Recovered/Resolved]
  - No adverse event [Unknown]
  - Migration of implanted drug [Recovered/Resolved]
  - Complication associated with device [Recovered/Resolved]
  - Expired product administered [Unknown]
  - Complication of device removal [Recovered/Resolved]

NARRATIVE: CASE EVENT DATE: 20120328
